FAERS Safety Report 17016270 (Version 1)
Quarter: 2019Q4

REPORT INFORMATION
  Report Type: Spontaneous
  Country: US (occurrence: US)
  Receive Date: 20191111
  Receipt Date: 20191111
  Transmission Date: 20200122
  Serious: No
  Sender: FDA-Public Use
  Company Number: US-PFIZER INC-2019477703

PATIENT
  Age: 43 Year
  Sex: Male

DRUGS (2)
  1. IBRANCE [Suspect]
     Active Substance: PALBOCICLIB
     Dosage: 100 MG, UNK
  2. IBRANCE [Suspect]
     Active Substance: PALBOCICLIB
     Indication: BREAST CANCER MALE
     Dosage: UNK, CYCLIC (NOW FIVE DAYS LATE STARTING THIS CYCLE OF IBRANCE)

REACTIONS (2)
  - Neoplasm progression [Unknown]
  - Stress [Unknown]
